FAERS Safety Report 6441808-0 (Version None)
Quarter: 2009Q4

REPORT INFORMATION
  Report Type: 
  Country: None (occurrence: None)
  Receive Date: 20091112
  Receipt Date: 20091105
  Transmission Date: 20100525
  Serious: Yes (Disabling)
  Sender: FDA-Public Use
  Company Number: 2009008713

PATIENT
  Age: 59 Year
  Sex: Male
  Weight: 74.8435 kg

DRUGS (4)
  1. NUVIGIL [Suspect]
     Indication: ASTHENIA
     Dosage: 150 MG (150 MG, 1 IN 1 D) ORAL
     Route: 048
     Dates: start: 20090605, end: 20090620
  2. NUVIGIL [Suspect]
     Indication: HYPERSOMNIA
     Dosage: 150 MG (150 MG, 1 IN 1 D) ORAL
     Route: 048
     Dates: start: 20090605, end: 20090620
  3. DEPAKOTE [Concomitant]
  4. ABILIFY [Concomitant]

REACTIONS (1)
  - HALLUCINATION [None]
